FAERS Safety Report 14298227 (Version 3)
Quarter: 2018Q2

REPORT INFORMATION
  Report Type: Spontaneous
  Country: US (occurrence: US)
  Receive Date: 20171218
  Receipt Date: 20180420
  Transmission Date: 20180711
  Serious: Yes (Hospitalization, Other)
  Sender: FDA-Public Use
  Company Number: US-LEXICON PHARMACEUTICALS, INC-17-1606-01269

PATIENT
  Age: 79 Year
  Sex: Female
  Weight: 63.56 kg

DRUGS (18)
  1. TELOTRISTAT ETHYL [Suspect]
     Active Substance: TELOTRISTAT ETHYL
     Indication: NEUROENDOCRINE TUMOUR
     Route: 048
     Dates: start: 20171109, end: 201711
  2. TELOTRISTAT ETHYL [Suspect]
     Active Substance: TELOTRISTAT ETHYL
     Route: 048
     Dates: start: 201711, end: 201711
  3. ATENOLOL. [Concomitant]
     Active Substance: ATENOLOL
  4. PRAVASTATIN SODIUM. [Concomitant]
     Active Substance: PRAVASTATIN SODIUM
  5. VITAMIN D3 [Concomitant]
     Active Substance: CHOLECALCIFEROL
  6. GATORADE [Concomitant]
     Active Substance: CARBOHYDRATES\ELECTROLYTES NOS\VITAMINS
  7. TRAMADOL. [Concomitant]
     Active Substance: TRAMADOL
  8. BOOST [Concomitant]
     Active Substance: DIETARY SUPPLEMENT
  9. DILTIAZEM. [Concomitant]
     Active Substance: DILTIAZEM
  10. LISINOPRIL. [Concomitant]
     Active Substance: LISINOPRIL
  11. ALIVE MULTIVITAMIN [Concomitant]
  12. BANATROL PLUS [Concomitant]
  13. PEPCID [Concomitant]
     Active Substance: FAMOTIDINE
  14. IBUPROFEN. [Concomitant]
     Active Substance: IBUPROFEN
  15. ASPIRIN. [Concomitant]
     Active Substance: ASPIRIN
  16. CHOLECALCIFEROL [Concomitant]
     Active Substance: CHOLECALCIFEROL
  17. TELOTRISTAT ETHYL [Suspect]
     Active Substance: TELOTRISTAT ETHYL
     Route: 048
     Dates: start: 2017, end: 20171206
  18. VITAMIN D2 [Concomitant]
     Active Substance: ERGOCALCIFEROL

REACTIONS (19)
  - Muscular weakness [Recovering/Resolving]
  - Breast pain [Recovering/Resolving]
  - Pain in extremity [Recovering/Resolving]
  - Chest pain [Recovering/Resolving]
  - Abdominal pain upper [Recovering/Resolving]
  - Blood potassium decreased [Recovering/Resolving]
  - Malaise [Recovering/Resolving]
  - Diarrhoea [Recovering/Resolving]
  - Rash [Recovering/Resolving]
  - Peripheral swelling [Recovering/Resolving]
  - Dyspnoea [Recovering/Resolving]
  - Depression [Recovering/Resolving]
  - Hypertension [Recovering/Resolving]
  - Peripheral coldness [Recovering/Resolving]
  - Asthenia [Recovering/Resolving]
  - Adverse reaction [Recovering/Resolving]
  - Paraesthesia [Recovering/Resolving]
  - Vomiting [Recovering/Resolving]
  - Gait disturbance [Recovering/Resolving]

NARRATIVE: CASE EVENT DATE: 201711
